FAERS Safety Report 13715213 (Version 2)
Quarter: 2017Q4

REPORT INFORMATION
  Report Type: Spontaneous
  Country: CN (occurrence: CN)
  Receive Date: 20170704
  Receipt Date: 20171117
  Transmission Date: 20180320
  Serious: Yes (Other)
  Sender: FDA-Public Use
  Company Number: CN-VISTAPHARM, INC.-VER201706-000171

PATIENT
  Age: 36 Year
  Sex: Male

DRUGS (1)
  1. PREDNISOLONE. [Suspect]
     Active Substance: PREDNISOLONE
     Indication: MULTICENTRIC RETICULOHISTIOCYTOSIS

REACTIONS (2)
  - Hepatic cancer metastatic [Unknown]
  - Condition aggravated [Unknown]
